FAERS Safety Report 19098428 (Version 3)
Quarter: 2021Q2

REPORT INFORMATION
  Report Type: Spontaneous
  Country: GR (occurrence: GR)
  Receive Date: 20210406
  Receipt Date: 20210608
  Transmission Date: 20210717
  Serious: Yes (Hospitalization, Other)
  Sender: FDA-Public Use
  Company Number: NVSC2021GR073887

PATIENT
  Age: 56 Year
  Sex: Male

DRUGS (2)
  1. ADALIMUMAB [Suspect]
     Active Substance: ADALIMUMAB
     Indication: PSORIATIC ARTHROPATHY
     Dosage: 40 MG, BIW (ADMINISTERED EVERY OTHER WEEK AS A SINGLE DOSE, Q2WK)
     Route: 058
  2. METHOTREXATE. [Concomitant]
     Active Substance: METHOTREXATE
     Indication: PSORIATIC ARTHROPATHY
     Dosage: 10 MG, QW
     Route: 048

REACTIONS (5)
  - Pleuropericarditis [Unknown]
  - Joint effusion [Recovering/Resolving]
  - Pleural effusion [Recovered/Resolved]
  - Hypertrophy [Unknown]
  - Atelectasis [Unknown]
